FAERS Safety Report 20647613 (Version 7)
Quarter: 2024Q2

REPORT INFORMATION
  Report Type: Report from Study
  Country: CA (occurrence: None)
  Receive Date: 20220329
  Receipt Date: 20240430
  Transmission Date: 20240715
  Serious: Yes (Other)
  Sender: FDA-Public Use
  Company Number: CA-PFIZER INC-2020013200

PATIENT
  Age: 46 Year
  Sex: Male

DRUGS (65)
  1. METHOTREXATE [Suspect]
     Active Substance: METHOTREXATE
     Indication: Product used for unknown indication
  2. METHOTREXATE [Suspect]
     Active Substance: METHOTREXATE
  3. METHOTREXATE [Suspect]
     Active Substance: METHOTREXATE
  4. OMALIZUMAB [Suspect]
     Active Substance: OMALIZUMAB
     Indication: Chronic spontaneous urticaria
  5. OMALIZUMAB [Suspect]
     Active Substance: OMALIZUMAB
  6. OMALIZUMAB [Suspect]
     Active Substance: OMALIZUMAB
  7. OMALIZUMAB [Suspect]
     Active Substance: OMALIZUMAB
  8. OMALIZUMAB [Suspect]
     Active Substance: OMALIZUMAB
  9. OMALIZUMAB [Suspect]
     Active Substance: OMALIZUMAB
  10. OMALIZUMAB [Suspect]
     Active Substance: OMALIZUMAB
  11. OMALIZUMAB [Suspect]
     Active Substance: OMALIZUMAB
  12. OMALIZUMAB [Suspect]
     Active Substance: OMALIZUMAB
  13. OMALIZUMAB [Suspect]
     Active Substance: OMALIZUMAB
  14. OMALIZUMAB [Suspect]
     Active Substance: OMALIZUMAB
  15. OMALIZUMAB [Suspect]
     Active Substance: OMALIZUMAB
  16. OMALIZUMAB [Suspect]
     Active Substance: OMALIZUMAB
  17. OMALIZUMAB [Suspect]
     Active Substance: OMALIZUMAB
  18. OMALIZUMAB [Suspect]
     Active Substance: OMALIZUMAB
  19. OMALIZUMAB [Suspect]
     Active Substance: OMALIZUMAB
  20. OMALIZUMAB [Suspect]
     Active Substance: OMALIZUMAB
  21. OMALIZUMAB [Suspect]
     Active Substance: OMALIZUMAB
  22. OMALIZUMAB [Suspect]
     Active Substance: OMALIZUMAB
  23. OMALIZUMAB [Suspect]
     Active Substance: OMALIZUMAB
  24. OMALIZUMAB [Suspect]
     Active Substance: OMALIZUMAB
  25. OMALIZUMAB [Suspect]
     Active Substance: OMALIZUMAB
  26. OMALIZUMAB [Suspect]
     Active Substance: OMALIZUMAB
  27. OMALIZUMAB [Suspect]
     Active Substance: OMALIZUMAB
  28. OMALIZUMAB [Suspect]
     Active Substance: OMALIZUMAB
  29. OMALIZUMAB [Suspect]
     Active Substance: OMALIZUMAB
  30. OMALIZUMAB [Suspect]
     Active Substance: OMALIZUMAB
  31. OMALIZUMAB [Suspect]
     Active Substance: OMALIZUMAB
  32. OMALIZUMAB [Suspect]
     Active Substance: OMALIZUMAB
  33. OMALIZUMAB [Suspect]
     Active Substance: OMALIZUMAB
  34. OMALIZUMAB [Suspect]
     Active Substance: OMALIZUMAB
  35. OMALIZUMAB [Suspect]
     Active Substance: OMALIZUMAB
  36. OMALIZUMAB [Suspect]
     Active Substance: OMALIZUMAB
  37. OMALIZUMAB [Suspect]
     Active Substance: OMALIZUMAB
  38. OMALIZUMAB [Suspect]
     Active Substance: OMALIZUMAB
  39. OMALIZUMAB [Suspect]
     Active Substance: OMALIZUMAB
  40. OMALIZUMAB [Suspect]
     Active Substance: OMALIZUMAB
  41. OMALIZUMAB [Suspect]
     Active Substance: OMALIZUMAB
  42. OMALIZUMAB [Suspect]
     Active Substance: OMALIZUMAB
  43. OMALIZUMAB [Suspect]
     Active Substance: OMALIZUMAB
  44. OMALIZUMAB [Suspect]
     Active Substance: OMALIZUMAB
  45. OMALIZUMAB [Suspect]
     Active Substance: OMALIZUMAB
  46. OMALIZUMAB [Suspect]
     Active Substance: OMALIZUMAB
  47. OMALIZUMAB [Suspect]
     Active Substance: OMALIZUMAB
  48. OMALIZUMAB [Suspect]
     Active Substance: OMALIZUMAB
  49. OMALIZUMAB [Suspect]
     Active Substance: OMALIZUMAB
  50. OMALIZUMAB [Suspect]
     Active Substance: OMALIZUMAB
  51. OMALIZUMAB [Suspect]
     Active Substance: OMALIZUMAB
  52. OMALIZUMAB [Suspect]
     Active Substance: OMALIZUMAB
  53. OMALIZUMAB [Suspect]
     Active Substance: OMALIZUMAB
  54. OMALIZUMAB [Suspect]
     Active Substance: OMALIZUMAB
  55. OMALIZUMAB [Suspect]
     Active Substance: OMALIZUMAB
  56. OMALIZUMAB [Suspect]
     Active Substance: OMALIZUMAB
  57. INFLUENZA VIRUS VACCINE [Suspect]
     Active Substance: INFLUENZA VIRUS VACCINE
     Indication: Product used for unknown indication
  58. HYDROXYZINE [Concomitant]
     Active Substance: HYDROXYZINE HYDROCHLORIDE
  59. HYDROXYZINE [Concomitant]
     Active Substance: HYDROXYZINE HYDROCHLORIDE
  60. PREDNISONE [Concomitant]
     Active Substance: PREDNISONE
  61. REACTINE [Concomitant]
  62. DIAZEPAM [Concomitant]
     Active Substance: DIAZEPAM
  63. FOLIC ACID [Concomitant]
     Active Substance: FOLIC ACID
  64. FOLIC ACID [Concomitant]
     Active Substance: FOLIC ACID
  65. ATORVASTATIN CALCIUM [Concomitant]
     Active Substance: ATORVASTATIN CALCIUM

REACTIONS (15)
  - Drug ineffective [Not Recovered/Not Resolved]
  - Inappropriate schedule of product administration [Not Recovered/Not Resolved]
  - Therapeutic product effect incomplete [Not Recovered/Not Resolved]
  - Product dose omission issue [Not Recovered/Not Resolved]
  - Blood pressure increased [Not Recovered/Not Resolved]
  - Dyspnoea [Not Recovered/Not Resolved]
  - Lip swelling [Not Recovered/Not Resolved]
  - Periorbital swelling [Not Recovered/Not Resolved]
  - Pruritus [Not Recovered/Not Resolved]
  - Rash [Not Recovered/Not Resolved]
  - Swelling [Not Recovered/Not Resolved]
  - Urticaria [Not Recovered/Not Resolved]
  - Weight decreased [Not Recovered/Not Resolved]
  - Chest pain [Not Recovered/Not Resolved]
  - Gastrooesophageal reflux disease [Not Recovered/Not Resolved]
